FAERS Safety Report 21463352 (Version 1)
Quarter: 2022Q4

REPORT INFORMATION
  Report Type: Spontaneous
  Country: US (occurrence: US)
  Receive Date: 20221017
  Receipt Date: 20221017
  Transmission Date: 20230113
  Serious: No
  Sender: FDA-Public Use
  Company Number: US-ABBVIE-4153933

PATIENT
  Age: 44 Year
  Sex: Male

DRUGS (2)
  1. TESTOSTERONE CYPIONATE [Suspect]
     Active Substance: TESTOSTERONE CYPIONATE
     Indication: Hormone therapy
     Route: 030
  2. ANDROGEL [Suspect]
     Active Substance: TESTOSTERONE
     Indication: Blood testosterone abnormal
     Route: 061

REACTIONS (3)
  - Headache [Unknown]
  - Haemoglobin increased [Unknown]
  - Patient dissatisfaction with treatment [Unknown]
